FAERS Safety Report 17014870 (Version 2)
Quarter: 2019Q4

REPORT INFORMATION
  Report Type: Spontaneous
  Country: JP (occurrence: JP)
  Receive Date: 20191111
  Receipt Date: 20191206
  Transmission Date: 20200122
  Serious: Yes (Life-Threatening, Hospitalization, Other)
  Sender: FDA-Public Use
  Company Number: JP-BRISTOL-MYERS SQUIBB COMPANY-BMS-2019-106213

PATIENT
  Age: 78 Year
  Sex: Male

DRUGS (1)
  1. HYDREA [Suspect]
     Active Substance: HYDROXYUREA
     Indication: ESSENTIAL THROMBOCYTHAEMIA
     Dosage: 500 MILLIGRAM, QD
     Route: 048
     Dates: start: 20121004, end: 20191101

REACTIONS (1)
  - Lung neoplasm malignant [Recovering/Resolving]

NARRATIVE: CASE EVENT DATE: 20190806
